FAERS Safety Report 19898878 (Version 6)
Quarter: 2021Q4

REPORT INFORMATION
  Report Type: Spontaneous
  Country: US (occurrence: US)
  Receive Date: 20210930
  Receipt Date: 20211106
  Transmission Date: 20220303
  Serious: No
  Sender: FDA-Public Use
  Company Number: US-UNITED THERAPEUTICS-UNT-2021-018093

PATIENT
  Sex: Male
  Weight: 76.19 kg

DRUGS (8)
  1. TYVASO [Suspect]
     Active Substance: TREPROSTINIL
     Indication: Pulmonary arterial hypertension
     Dosage: 24 ???G, QID
     Dates: start: 20210909
  2. TYVASO [Suspect]
     Active Substance: TREPROSTINIL
     Dosage: 18-54 ???G, QID
     Dates: start: 202109
  3. TYVASO [Suspect]
     Active Substance: TREPROSTINIL
     Dosage: 60-120 ???G, QID
     Dates: start: 202109, end: 202109
  4. TYVASO [Suspect]
     Active Substance: TREPROSTINIL
     Dosage: 60-120 ???G, QID
     Dates: start: 2021
  5. TYVASO [Suspect]
     Active Substance: TREPROSTINIL
     Dosage: 18-54 ???G, QID
     Dates: start: 2021
  6. TYVASO [Suspect]
     Active Substance: TREPROSTINIL
     Dosage: 18-72 ???G, QID
     Dates: start: 2021
  7. TYVASO [Suspect]
     Active Substance: TREPROSTINIL
     Dosage: 18-72 ???G, QID
     Dates: start: 2021
  8. ELIQUIS [Concomitant]
     Active Substance: APIXABAN
     Indication: Product used for unknown indication
     Dosage: UNK
     Route: 065

REACTIONS (14)
  - Paranasal sinus discomfort [Unknown]
  - Cough [Recovering/Resolving]
  - Diarrhoea [Recovered/Resolved]
  - Headache [Unknown]
  - Abdominal pain [Not Recovered/Not Resolved]
  - Oxygen saturation decreased [Unknown]
  - Oropharyngeal pain [Recovered/Resolved]
  - Weight decreased [Unknown]
  - Urine output decreased [Unknown]
  - Contusion [Unknown]
  - Pruritus [Unknown]
  - Decreased appetite [Unknown]
  - Vertigo positional [Unknown]
  - Off label use [Recovered/Resolved]

NARRATIVE: CASE EVENT DATE: 20210101
